FAERS Safety Report 20770169 (Version 1)
Quarter: 2022Q2

REPORT INFORMATION
  Report Type: Spontaneous
  Country: PL (occurrence: PL)
  Receive Date: 20220429
  Receipt Date: 20220429
  Transmission Date: 20220721
  Serious: Yes (Hospitalization, Other)
  Sender: FDA-Public Use
  Company Number: PL-NAPPMUNDI-GBR-2021-0087003

PATIENT
  Age: 76 Year
  Sex: Female

DRUGS (71)
  1. MORPHINE SULFATE [Suspect]
     Active Substance: MORPHINE SULFATE
     Indication: Back pain
     Route: 065
  2. MORPHINE SULFATE [Suspect]
     Active Substance: MORPHINE SULFATE
     Indication: Pain
  3. MORPHINE SULFATE [Suspect]
     Active Substance: MORPHINE SULFATE
     Indication: Myalgia
  4. BUPRENORPHINE [Suspect]
     Active Substance: BUPRENORPHINE
     Indication: Product used for unknown indication
     Dosage: UNK
     Route: 065
  5. MORPHINE [Suspect]
     Active Substance: MORPHINE
     Indication: Product used for unknown indication
     Route: 065
  6. FENTANYL [Suspect]
     Active Substance: FENTANYL
     Indication: Back pain
     Dosage: 12 TABLET, UNK
     Route: 065
  7. FENTANYL [Suspect]
     Active Substance: FENTANYL
     Indication: Myalgia
     Dosage: UNK
     Route: 050
  8. FENTANYL [Suspect]
     Active Substance: FENTANYL
     Indication: Pain
     Dosage: 400 MCG, Q2H [REDUCED BY 25 MCG EVERY 2-3 WEEKS]
     Route: 050
  9. FENTANYL [Suspect]
     Active Substance: FENTANYL
     Dosage: 150 MCG, Q1H [REDUCED TO 150 MCG/H DOSE]
     Route: 062
  10. FENTANYL [Suspect]
     Active Substance: FENTANYL
     Dosage: 400 MCG, Q1H [4 PATCHES 100 MCG/H EVERY 3 DAYS]
     Route: 062
  11. TAPENTADOL [Suspect]
     Active Substance: TAPENTADOL
     Indication: Back pain
     Route: 065
  12. TAPENTADOL [Suspect]
     Active Substance: TAPENTADOL
     Indication: Myalgia
     Dosage: UNK
     Route: 065
  13. TAPENTADOL [Suspect]
     Active Substance: TAPENTADOL
     Dosage: UNK
     Route: 065
  14. OXYCODONE HYDROCHLORIDE [Concomitant]
     Active Substance: OXYCODONE HYDROCHLORIDE
     Indication: Back pain
     Dosage: UNK
     Route: 065
  15. OXYCODONE HYDROCHLORIDE [Concomitant]
     Active Substance: OXYCODONE HYDROCHLORIDE
     Indication: Myalgia
     Dosage: UNK
     Route: 065
  16. TIANEPTINE SODIUM [Concomitant]
     Active Substance: TIANEPTINE SODIUM
     Indication: Mixed anxiety and depressive disorder
     Dosage: 12.5 MG, TID [3 X 12.5 MG]
     Route: 065
  17. BROMHEXINE HYDROCHLORIDE [Concomitant]
     Active Substance: BROMHEXINE HYDROCHLORIDE
     Indication: Product used for unknown indication
     Dosage: 8 MG, DAILY [1 X 1 TABLET]
     Route: 048
  18. CAPTOPRIL [Concomitant]
     Active Substance: CAPTOPRIL
     Indication: Product used for unknown indication
     Dosage: 25 MG, PRN [WHEN NEEDED]
     Route: 065
  19. DROTAVERINE HYDROCHLORIDE [Concomitant]
     Active Substance: DROTAVERINE HYDROCHLORIDE
     Indication: Product used for unknown indication
     Dosage: UNK [2X1 TABLET]
     Route: 048
  20. PREGABALIN [Concomitant]
     Active Substance: PREGABALIN
     Indication: Product used for unknown indication
     Dosage: 150 MG, BID [2 X 150 MG]
     Route: 065
  21. PREGABALIN [Concomitant]
     Active Substance: PREGABALIN
     Dosage: 150 MG, DAILY [75 MG, BID (ONCE IN MORNING AND ONCE IN EVENING)]
     Route: 065
  22. QUETIAPINE [Concomitant]
     Active Substance: QUETIAPINE
     Indication: Product used for unknown indication
     Dosage: 25 MG, DAILY [25 MG BEFORE SLEEP]
     Route: 065
  23. POTASSIUM CHLORIDE [Concomitant]
     Active Substance: POTASSIUM CHLORIDE
     Indication: Product used for unknown indication
     Dosage: UNK [1 X 1 TABLET]
     Route: 048
  24. UROSEPT                            /00024401/ [Concomitant]
     Indication: Product used for unknown indication
     Dosage: UNK [2 X 1 TABLET]
     Route: 048
  25. TORECAN [Concomitant]
     Active Substance: THIETHYLPERAZINE MALATE
     Indication: Product used for unknown indication
     Dosage: 6.5 MG, DAILY
     Route: 048
  26. LUTEINA                            /00110701/ [Concomitant]
     Indication: Product used for unknown indication
     Dosage: 50 MG, DAILY [50 MG (1 X 1)]
     Route: 060
  27. ALLOPURINOL [Concomitant]
     Active Substance: ALLOPURINOL
     Indication: Product used for unknown indication
     Dosage: 300 MG, [1 X HALF TABLET]
     Route: 048
  28. SERTRALINE [Concomitant]
     Active Substance: SERTRALINE HYDROCHLORIDE
     Indication: Mixed anxiety and depressive disorder
     Dosage: UNK
     Route: 065
  29. ETOFENAMATE [Concomitant]
     Active Substance: ETOFENAMATE
     Indication: Product used for unknown indication
     Dosage: UNK
     Route: 061
  30. BISOPROLOL [Concomitant]
     Active Substance: BISOPROLOL
     Indication: Product used for unknown indication
     Dosage: 5 MG, [1 X HALF TABLET]
     Route: 048
  31. RENNIE                             /01739201/ [Concomitant]
     Indication: Product used for unknown indication
     Dosage: UNK [2 X 1 TABLET]
     Route: 048
  32. ULGIX LAXI [Concomitant]
     Indication: Product used for unknown indication
     Dosage: UNK [3 X 1 TABLET]
     Route: 048
  33. MIZODIN [Concomitant]
     Indication: Product used for unknown indication
     Dosage: 250 MG, [2 X HALF TABLET]
     Route: 065
  34. INDAPAMIDE [Concomitant]
     Active Substance: INDAPAMIDE
     Indication: Product used for unknown indication
     Dosage: UNK [1 X 1 TABLET]
     Route: 048
  35. LIOTON [Concomitant]
     Indication: Product used for unknown indication
     Dosage: UNK
     Route: 065
  36. DUSPATALIN                         /00139402/ [Concomitant]
     Indication: Product used for unknown indication
     Dosage: UNK [2 X 1 TABLET]
     Route: 048
  37. VITAMIN D NOS [Concomitant]
     Active Substance: VITAMIN D NOS
     Indication: Product used for unknown indication
     Dosage: 4000 IU, [4000 U 1 X 1]
     Route: 048
  38. HYDROXYZINE [Concomitant]
     Active Substance: HYDROXYZINE HYDROCHLORIDE
     Indication: Product used for unknown indication
     Dosage: 10 MG, DAILY [BEFORE SLEEP]
     Route: 065
  39. NITRENDIPINE [Concomitant]
     Active Substance: NITRENDIPINE
     Indication: Product used for unknown indication
     Dosage: 10 MG, [1 X HALF TABLET]
     Route: 065
  40. INHIBACE                           /00845401/ [Concomitant]
     Indication: Product used for unknown indication
     Dosage: 5 MG, [2 X 1 TABLET]
     Route: 048
  41. LORAZEPAM [Concomitant]
     Active Substance: LORAZEPAM
     Indication: Mixed anxiety and depressive disorder
     Dosage: UNK
     Route: 065
  42. CHLORPROTHIXENE [Suspect]
     Active Substance: CHLORPROTHIXENE
     Indication: Mixed anxiety and depressive disorder
     Dosage: 30 MILLIGRAM, DAILY
     Route: 065
  43. QUETIAPINE [Suspect]
     Active Substance: QUETIAPINE
     Indication: Product used for unknown indication
     Dosage: 25 MILLIGRAM, DAILY
     Route: 065
  44. AMITRIPTYLINE [Suspect]
     Active Substance: AMITRIPTYLINE
     Indication: Product used for unknown indication
     Dosage: UNK
     Route: 065
  45. VENLAFAXINE [Suspect]
     Active Substance: VENLAFAXINE HYDROCHLORIDE
     Indication: Product used for unknown indication
     Dosage: UNK
     Route: 065
  46. SERTRALINE [Suspect]
     Active Substance: SERTRALINE HYDROCHLORIDE
     Indication: Mixed anxiety and depressive disorder
     Dosage: UNK
     Route: 065
  47. PREGABALIN [Suspect]
     Active Substance: PREGABALIN
     Indication: Pain
     Dosage: 300 MICROGRAM, DAILY
     Route: 048
  48. PREGABALIN [Suspect]
     Active Substance: PREGABALIN
     Dosage: 150 MICROGRAM, DAILY
     Route: 048
  49. TIANEPTINE SODIUM [Suspect]
     Active Substance: TIANEPTINE SODIUM
     Indication: Mixed anxiety and depressive disorder
     Dosage: 12.5 MILLIGRAM, TID
     Route: 065
  50. FENTANYL CITRATE [Suspect]
     Active Substance: FENTANYL CITRATE
     Indication: Pain
     Dosage: 800 MICROGRAM, DAILY
     Route: 065
  51. FENTANYL CITRATE [Suspect]
     Active Substance: FENTANYL CITRATE
     Dosage: 12 DOSAGE FORM
     Route: 065
  52. FENTANYL CITRATE [Suspect]
     Active Substance: FENTANYL CITRATE
     Dosage: 5 DOSAGE FORM
     Route: 065
  53. FENTANYL CITRATE [Suspect]
     Active Substance: FENTANYL CITRATE
     Dosage: UNK
     Route: 065
  54. FENTANYL CITRATE [Suspect]
     Active Substance: FENTANYL CITRATE
     Dosage: 1 DOSAGE FORM
     Route: 065
  55. FENTANYL [Concomitant]
     Active Substance: FENTANYL
     Dosage: UNK
  56. Urosept [Concomitant]
     Indication: Product used for unknown indication
     Dosage: UNK [2 X 1 TABLET]
     Route: 048
  57. LUTEINA [Concomitant]
     Indication: Product used for unknown indication
     Dosage: 50 MG, DAILY [50 MG (1 X 1)]
     Route: 060
  58. Rennie [Concomitant]
     Indication: Product used for unknown indication
     Dosage: UNK [2 X 1 TABLET]
     Route: 048
  59. MEBEVERINE [Concomitant]
     Active Substance: MEBEVERINE
     Indication: Product used for unknown indication
     Dosage: UNK [2 X 1 TABLET]
     Route: 048
  60. INHIBACE [Concomitant]
     Active Substance: CILAZAPRIL ANHYDROUS
     Indication: Product used for unknown indication
     Dosage: 5 MG, [2 X 1 TABLET]
     Route: 048
  61. Structum [Concomitant]
  62. PIRACETAM [Concomitant]
     Active Substance: PIRACETAM
  63. VITAMIN D3 [Concomitant]
     Active Substance: CHOLECALCIFEROL
     Dosage: UNK
  64. FRANGULA PURSHIANA BARK [Concomitant]
     Active Substance: FRANGULA PURSHIANA BARK
     Dosage: UNK
  65. CHLORPROTHIXENE HYDROCHLORIDE [Concomitant]
     Active Substance: CHLORPROTHIXENE HYDROCHLORIDE
     Dosage: UNK
  66. ULGIX WZDECIA [Concomitant]
     Dosage: UNK
  67. CHOLESTEROL [Concomitant]
     Active Substance: CHOLESTEROL
     Dosage: UNK
  68. LIDOCAINE [Concomitant]
     Active Substance: LIDOCAINE
     Dosage: UNK
  69. PENTOXIFYLLINE [Concomitant]
     Active Substance: PENTOXIFYLLINE
     Dosage: UNK
  70. DULOXETINE [Concomitant]
     Active Substance: DULOXETINE
     Dosage: UNK
  71. TOLPERISONE [Concomitant]
     Active Substance: TOLPERISONE
     Dosage: UNK

REACTIONS (20)
  - Drug dependence [Not Recovered/Not Resolved]
  - Asthenia [Unknown]
  - Tremor [Unknown]
  - Hyperhidrosis [Unknown]
  - Drug withdrawal syndrome [Unknown]
  - Hypotension [Unknown]
  - Obstruction [Unknown]
  - Mental disorder [Unknown]
  - Pain [Unknown]
  - Intentional product misuse [Unknown]
  - Myalgia [Recovering/Resolving]
  - Constipation [Recovering/Resolving]
  - Drug use disorder [Unknown]
  - Contraindicated product administered [Unknown]
  - Drug abuse [Unknown]
  - Chills [Recovering/Resolving]
  - Anxiety [Recovering/Resolving]
  - Drug ineffective [Unknown]
  - Affective disorder [Recovered/Resolved]
  - Intentional product misuse [Unknown]
